FAERS Safety Report 18388138 (Version 1)
Quarter: 2020Q4

REPORT INFORMATION
  Report Type: Spontaneous
  Country: GR (occurrence: GR)
  Receive Date: 20201015
  Receipt Date: 20201015
  Transmission Date: 20210114
  Serious: Yes (Other)
  Sender: FDA-Public Use
  Company Number: NVSC2020GR275072

PATIENT
  Sex: Male

DRUGS (2)
  1. LESCOL [Suspect]
     Active Substance: FLUVASTATIN SODIUM
     Indication: PRODUCT USED FOR UNKNOWN INDICATION
     Dosage: 40 MG, QD
     Route: 065
  2. LIPITOR [Concomitant]
     Active Substance: ATORVASTATIN CALCIUM
     Indication: PRODUCT USED FOR UNKNOWN INDICATION
     Dosage: UNK
     Route: 065

REACTIONS (9)
  - Chromaturia [Unknown]
  - Cholelithiasis [Unknown]
  - Transaminases increased [Unknown]
  - Fatigue [Unknown]
  - Gamma-glutamyltransferase increased [Unknown]
  - Diarrhoea [Unknown]
  - Pruritus [Unknown]
  - Dyspnoea [Unknown]
  - Pyrexia [Unknown]
